FAERS Safety Report 10727272 (Version 1)
Quarter: 2015Q1

REPORT INFORMATION
  Report Type: Spontaneous
  Country: US (occurrence: US)
  Receive Date: 20150121
  Receipt Date: 20150121
  Transmission Date: 20150721
  Serious: No
  Sender: FDA-Public Use
  Company Number: US-PFIZER INC-2015021573

PATIENT
  Age: 27 Year
  Sex: Male
  Weight: 88 kg

DRUGS (1)
  1. NEURONTIN [Suspect]
     Active Substance: GABAPENTIN
     Indication: NEUROPATHY PERIPHERAL
     Dosage: 300MG CAPSULES TAKE ONE BY MOUTH ONE IN MORNING ONE AT NOON AND TWO AT NIGHT TIME,  3X/DAY
     Route: 048

REACTIONS (1)
  - Drug ineffective [Unknown]
